FAERS Safety Report 24136254 (Version 1)
Quarter: 2024Q3

REPORT INFORMATION
  Report Type: Spontaneous
  Country: LK (occurrence: LK)
  Receive Date: 20240725
  Receipt Date: 20240725
  Transmission Date: 20241017
  Serious: Yes (Death, Other)
  Sender: TAKEDA
  Company Number: LK-TAKEDA-2024TUS074677

PATIENT
  Sex: Male

DRUGS (1)
  1. ICLUSIG [Suspect]
     Active Substance: PONATINIB\PONATINIB HYDROCHLORIDE
     Indication: Chronic myeloid leukaemia
     Dosage: 45 MILLIGRAM
     Route: 065

REACTIONS (1)
  - Death [Fatal]
